FAERS Safety Report 14190559 (Version 1)
Quarter: 2017Q4

REPORT INFORMATION
  Report Type: Spontaneous
  Country: ES (occurrence: ES)
  Receive Date: 20171115
  Receipt Date: 20171115
  Transmission Date: 20180321
  Serious: Yes (Other)
  Sender: FDA-Public Use
  Company Number: ES-JNJFOC-20171107748

PATIENT
  Age: 22 Year
  Sex: Male

DRUGS (6)
  1. RISPERDAL [Suspect]
     Active Substance: RISPERIDONE
     Indication: MANIA
     Dosage: 2 MG AND 4 MG
     Route: 048
     Dates: start: 20160506, end: 201605
  2. AKINETON [Interacting]
     Active Substance: BIPERIDEN HYDROCHLORIDE
     Indication: PRODUCT USED FOR UNKNOWN INDICATION
     Dosage: TOTAL OF 12 MG
     Route: 048
     Dates: start: 20160601
  3. NOCTAMID [Interacting]
     Active Substance: LORMETAZEPAM
     Indication: MANIA
     Dosage: 0-0-1
     Route: 048
     Dates: start: 20160506, end: 201605
  4. LYRICA [Interacting]
     Active Substance: PREGABALIN
     Indication: MANIA
     Dosage: 0-0-1
     Route: 048
     Dates: start: 20160516, end: 201605
  5. RISPERDAL [Suspect]
     Active Substance: RISPERIDONE
     Indication: MANIA
     Route: 048
     Dates: start: 20160516, end: 201605
  6. SOLIAN [Interacting]
     Active Substance: AMISULPRIDE
     Indication: MANIA
     Dosage: 0-0-1
     Route: 048
     Dates: start: 20160601

REACTIONS (2)
  - Drug interaction [Not Recovered/Not Resolved]
  - Abnormal weight gain [Not Recovered/Not Resolved]

NARRATIVE: CASE EVENT DATE: 201606
